FAERS Safety Report 7367507-9 (Version None)
Quarter: 2011Q1

REPORT INFORMATION
  Report Type: 
  Country: None (occurrence: None)
  Receive Date: 20110311
  Receipt Date: 20110225
  Transmission Date: 20110831
  Serious: Yes (Hospitalization)
  Sender: FDA-Public Use
  Company Number: 2011MA001852

PATIENT
  Age: 33 Year
  Sex: Female

DRUGS (1)
  1. FLUOXETINE [Suspect]
     Indication: DEPRESSION
     Dosage: PO
     Route: 048

REACTIONS (10)
  - RADIUS FRACTURE [None]
  - ULNA FRACTURE [None]
  - BLOOD LUTEINISING HORMONE INCREASED [None]
  - HUMERUS FRACTURE [None]
  - MULTIPLE FRACTURES [None]
  - DEPRESSION [None]
  - SPINAL FRACTURE [None]
  - DISEASE RECURRENCE [None]
  - BLOOD FOLLICLE STIMULATING HORMONE INCREASED [None]
  - BONE METABOLISM DISORDER [None]
